FAERS Safety Report 7187353-9 (Version None)
Quarter: 2010Q4

REPORT INFORMATION
  Report Type: 
  Country: None (occurrence: None)
  Receive Date: 20101222
  Receipt Date: 20101207
  Transmission Date: 20110411
  Serious: Yes (Death, Life-Threatening, Hospitalization, Disabling)
  Sender: FDA-Public Use
  Company Number: PT-GENENTECH-310991

PATIENT
  Sex: Male

DRUGS (1)
  1. RANIBIZUMAB [Suspect]
     Indication: MACULAR DEGENERATION
     Dosage: 50 UNK, UNK
     Route: 031
     Dates: start: 20000215, end: 20090909

REACTIONS (5)
  - DEATH [None]
  - GENERAL PHYSICAL HEALTH DETERIORATION [None]
  - LUNG CARCINOMA CELL TYPE UNSPECIFIED STAGE IV [None]
  - METASTASES TO BONE [None]
  - METASTASES TO LYMPH NODES [None]
